FAERS Safety Report 7229139-2 (Version None)
Quarter: 2011Q1

REPORT INFORMATION
  Report Type: 
  Country: None (occurrence: None)
  Receive Date: 20110117
  Receipt Date: 20110107
  Transmission Date: 20110831
  Serious: Yes (Other)
  Sender: FDA-Public Use
  Company Number: IL-JNJFOC-20110102094

PATIENT
  Age: 40 Year
  Sex: Female

DRUGS (1)
  1. REMICADE [Suspect]
     Indication: PSORIASIS
     Dosage: 6 INFUSIONS
     Route: 042

REACTIONS (4)
  - CHEST PAIN [None]
  - VOMITING [None]
  - ERYTHEMA [None]
  - ASPHYXIA [None]
